FAERS Safety Report 19479004 (Version 2)
Quarter: 2021Q3

REPORT INFORMATION
  Report Type: Spontaneous
  Country: EC (occurrence: EC)
  Receive Date: 20210701
  Receipt Date: 20210809
  Transmission Date: 20211014
  Serious: Yes (Other)
  Sender: FDA-Public Use
  Company Number: EC-B.I. PHARMACEUTICALS,INC./RIDGEFIELD-2021-BI-112113

PATIENT
  Age: 96 Year
  Sex: Male

DRUGS (2)
  1. GILOTRIF [Suspect]
     Active Substance: AFATINIB
     Indication: LUNG CANCER METASTATIC
     Dosage: QD
     Route: 048
     Dates: start: 20201116, end: 20210623
  2. GILOTRIF [Suspect]
     Active Substance: AFATINIB
     Dosage: 2 TABLETS PER DAY (60 MG PER DAY)
     Route: 048

REACTIONS (4)
  - Tongue oedema [Recovered/Resolved]
  - Mouth injury [Recovered/Resolved]
  - Subcutaneous abscess [Recovered/Resolved]
  - Oedema mouth [Recovered/Resolved]

NARRATIVE: CASE EVENT DATE: 202012
